FAERS Safety Report 4462230-2 (Version None)
Quarter: 2004Q3

REPORT INFORMATION
  Report Type: 
  Country: None (occurrence: None)
  Receive Date: 20040929
  Receipt Date: 20001006
  Transmission Date: 20050211
  Serious: Yes (Death, Other)
  Sender: FDA-Public Use
  Company Number: 10559060

PATIENT
  Age: 23 Year
  Sex: Female

DRUGS (7)
  1. ATAZANAVIR [Suspect]
     Indication: HIV INFECTION
     Route: 048
     Dates: start: 19991111, end: 20001008
  2. VIDEX TABS RM [Suspect]
     Indication: HIV INFECTION
     Route: 048
     Dates: start: 19991210, end: 20001009
  3. ZERIT [Suspect]
     Indication: HIV INFECTION
     Route: 048
     Dates: start: 19991111, end: 20001009
  4. KETOROLAC [Suspect]
     Dates: start: 20001005, end: 20001005
  5. IRON [Concomitant]
     Dates: start: 19990527, end: 20001009
  6. FOLATE [Concomitant]
     Dates: start: 20000527, end: 20001009
  7. BECLOMETHASONE DIPROPIONATE [Concomitant]
     Dates: start: 20000527, end: 20001009

REACTIONS (7)
  - DEATH [None]
  - HAEMATEMESIS [None]
  - HEPATIC STEATOSIS [None]
  - LACTIC ACIDOSIS [None]
  - NORMAL NEWBORN [None]
  - PREGNANCY [None]
  - UPPER GASTROINTESTINAL HAEMORRHAGE [None]
